FAERS Safety Report 9676201 (Version 1)
Quarter: 2013Q4

REPORT INFORMATION
  Report Type: Spontaneous
  Country: US (occurrence: None)
  Receive Date: 20131105
  Receipt Date: 20131105
  Transmission Date: 20140711
  Serious: Yes (Hospitalization)
  Sender: FDA-Public Use
  Company Number: 2013AP009480

PATIENT
  Age: 55 Year
  Sex: Male

DRUGS (2)
  1. AMLODIPINE BESYLATE TABLETS [Suspect]
     Route: 048
  2. LABETALOL HYDROCHLORIDE [Suspect]
     Route: 048

REACTIONS (4)
  - Hypotension [None]
  - Mental status changes [None]
  - Overdose [None]
  - Renal failure acute [None]
